FAERS Safety Report 4347906-X (Version None)
Quarter: 2004Q2

REPORT INFORMATION
  Report Type: 
  Country: None (occurrence: None)
  Receive Date: 20040422
  Receipt Date: 20040413
  Transmission Date: 20050107
  Serious: Yes (Other)
  Sender: FDA-Public Use
  Company Number: 2004025366

PATIENT
  Sex: Female

DRUGS (2)
  1. NEURONTIN [Suspect]
     Indication: NEURITIS
     Dosage: 1500 MG (FOUR TIMES A DAY), ORAL
     Route: 048
     Dates: start: 20020101
  2. VICODIN [Concomitant]

REACTIONS (8)
  - DIFFICULTY IN WALKING [None]
  - DRUG INEFFECTIVE [None]
  - DYSPNOEA [None]
  - FEELING ABNORMAL [None]
  - KYPHOSIS [None]
  - MEMORY IMPAIRMENT [None]
  - PALPITATIONS [None]
  - PHARMACEUTICAL PRODUCT COMPLAINT [None]
